FAERS Safety Report 10903650 (Version 1)
Quarter: 2015Q1

REPORT INFORMATION
  Report Type: Spontaneous
  Country: CA (occurrence: CA)
  Receive Date: 20150311
  Receipt Date: 20150311
  Transmission Date: 20150721
  Serious: Yes (Other)
  Sender: FDA-Public Use
  Company Number: PHHY2015CA023247

PATIENT
  Sex: Male

DRUGS (3)
  1. TIMOLOL MALEATE SANDOZ [Suspect]
     Active Substance: TIMOLOL MALEATE
     Indication: GLAUCOMA
     Dosage: 1 DRP, QD (IN ONE EYE)
     Route: 047
  2. SALBUTAMOL [Concomitant]
     Active Substance: ALBUTEROL
     Indication: ASTHMA
     Route: 065
  3. FLOVENT [Concomitant]
     Active Substance: FLUTICASONE PROPIONATE
     Indication: ASTHMA
     Route: 065

REACTIONS (3)
  - Choking [Not Recovered/Not Resolved]
  - Cough [Unknown]
  - Dyspnoea [Unknown]
